FAERS Safety Report 10081852 (Version 1)
Quarter: 2014Q2

REPORT INFORMATION
  Report Type: Spontaneous
  Country: DE (occurrence: DE)
  Receive Date: 20140416
  Receipt Date: 20140416
  Transmission Date: 20141212
  Serious: Yes (Hospitalization)
  Sender: FDA-Public Use
  Company Number: DE-PFIZER INC-2014105211

PATIENT
  Age: 57 Year
  Sex: Male
  Weight: 98 kg

DRUGS (8)
  1. PANTOZOL [Suspect]
     Dosage: 80 MG, UNK
     Route: 048
  2. LEPONEX [Suspect]
     Dosage: 300 MG, UNK
     Route: 048
     Dates: start: 20140408, end: 20140408
  3. LUVASED [Suspect]
     Dosage: 2 DF, UNK
     Route: 048
     Dates: start: 20140408, end: 20140408
  4. GASTROZEPIN [Suspect]
     Dosage: 50 MG, UNK
     Route: 048
  5. DYSURGAL [Concomitant]
     Dosage: STRENGTH: 0.5 MG
  6. LYOGEN [Concomitant]
     Dosage: STRENGTH: 10 MG
  7. RAMIPRIL [Concomitant]
     Dosage: STRENGTH: 2.5 MG
  8. OLANZAPINE [Concomitant]
     Dosage: STRENGTH: 10 MG

REACTIONS (4)
  - Accidental exposure to product [Unknown]
  - Dysarthria [Unknown]
  - Tachycardia [Recovered/Resolved]
  - Nausea [Unknown]
